FAERS Safety Report 9553338 (Version 1)
Quarter: 2013Q3

REPORT INFORMATION
  Report Type: Report from Study
  Country: US (occurrence: US)
  Receive Date: 20130925
  Receipt Date: 20130925
  Transmission Date: 20140515
  Serious: Yes (Hospitalization)
  Sender: FDA-Public Use
  Company Number: US-SANOFI-AVENTIS-2013SA093736

PATIENT
  Age: 54 Year
  Sex: Female

DRUGS (6)
  1. AUBAGIO [Suspect]
     Indication: MULTIPLE SCLEROSIS
     Route: 048
     Dates: start: 201301
  2. FISH OIL [Concomitant]
  3. METOPROLOL SUCCINATE [Concomitant]
  4. VALIUM [Concomitant]
  5. ZANAFLEX [Concomitant]
  6. BACLOFEN [Concomitant]

REACTIONS (2)
  - Adverse event [Unknown]
  - Drug dose omission [Unknown]
